FAERS Safety Report 17742405 (Version 1)
Quarter: 2020Q2

REPORT INFORMATION
  Report Type: Spontaneous
  Country: NL (occurrence: NL)
  Receive Date: 20200504
  Receipt Date: 20200504
  Transmission Date: 20200714
  Serious: Yes (Hospitalization)
  Sender: FDA-Public Use
  Company Number: NL-MYLANLABS-2020M1043654

PATIENT
  Age: 35 Year
  Sex: Male
  Weight: 92 kg

DRUGS (2)
  1. FLUCLOXACILLINE                    /00239101/ [Concomitant]
     Active Substance: FLUCLOXACILLIN
     Dosage: CAPSULE, 500 MG (MILLIGRAM)
  2. VENLAFAXINE [Suspect]
     Active Substance: VENLAFAXINE HYDROCHLORIDE
     Indication: DEPRESSION
     Dosage: 1D2TABET = 150 MG
     Dates: start: 200501, end: 20200115

REACTIONS (2)
  - Jaundice cholestatic [Recovering/Resolving]
  - Hepatitis [Recovering/Resolving]

NARRATIVE: CASE EVENT DATE: 20191101
